FAERS Safety Report 18594238 (Version 1)
Quarter: 2020Q4

REPORT INFORMATION
  Report Type: Spontaneous
  Country: HR (occurrence: HR)
  Receive Date: 20201209
  Receipt Date: 20201209
  Transmission Date: 20210114
  Serious: Yes (Other)
  Sender: FDA-Public Use
  Company Number: HR-JNJFOC-20201211955

PATIENT
  Sex: Female

DRUGS (7)
  1. XARELTO [Suspect]
     Active Substance: RIVAROXABAN
     Indication: THROMBOSIS PROPHYLAXIS
     Dosage: UNK
     Route: 048
     Dates: start: 201804
  2. NEBIVOLOL. [Concomitant]
     Active Substance: NEBIVOLOL
  3. EPLERENONE. [Concomitant]
     Active Substance: EPLERENONE
     Dosage: 25 MG
  4. FURSEMIDE [Concomitant]
     Active Substance: FUROSEMIDE
     Dosage: 40 MG
  5. LERCANIDIPINE [Concomitant]
     Active Substance: LERCANIDIPINE
     Dosage: 10 MG
  6. POTASSIUM [Concomitant]
     Active Substance: POTASSIUM
  7. XARELTO [Suspect]
     Active Substance: RIVAROXABAN
     Indication: ATRIAL FIBRILLATION
     Route: 048

REACTIONS (2)
  - Cardiac failure [Unknown]
  - Chronic kidney disease [Unknown]

NARRATIVE: CASE EVENT DATE: 201903
